FAERS Safety Report 9961900 (Version 2)
Quarter: 2014Q1

REPORT INFORMATION
  Report Type: Report from Study
  Country: PR (occurrence: PR)
  Receive Date: 20140305
  Receipt Date: 20140305
  Transmission Date: 20141002
  Serious: No
  Sender: FDA-Public Use
  Company Number: PR-ABBVIE-13P-131-1046359-00

PATIENT
  Sex: Female
  Weight: 59.02 kg

DRUGS (11)
  1. HUMIRA [Suspect]
     Indication: RHEUMATOID ARTHRITIS
     Route: 058
     Dates: start: 2010
  2. SYNTHROID [Concomitant]
     Indication: NODULE
     Route: 048
  3. KLONOPIN [Concomitant]
     Indication: SCHIZOPHRENIA
     Dosage: 1 AT NIGHT
     Route: 048
  4. KLONOPIN [Concomitant]
     Indication: SCHIZOPHRENIA
     Route: 048
  5. ULTRACET [Concomitant]
     Indication: PAIN
     Route: 048
  6. METHOTREXATE [Concomitant]
     Indication: RHEUMATOID ARTHRITIS
     Route: 048
  7. VITAMIN D NOS [Concomitant]
     Indication: VITAMIN SUPPLEMENTATION
     Route: 048
  8. NEURONTIN [Concomitant]
     Indication: NERVE INJURY
     Dosage: 1 AT NIGHT
     Route: 048
  9. PROZAC [Concomitant]
     Indication: SCHIZOPHRENIA
     Route: 048
  10. ATENOL [Concomitant]
     Indication: BONE DISORDER
     Route: 048
  11. AMARIL D [Concomitant]
     Indication: DIABETES MELLITUS
     Route: 048

REACTIONS (2)
  - Feeling abnormal [Recovered/Resolved]
  - Dysgeusia [Recovered/Resolved]
